FAERS Safety Report 9409892 (Version 1)
Quarter: 2013Q2

REPORT INFORMATION
  Report Type: Spontaneous
  Country: IT (occurrence: None)
  Receive Date: 20130403
  Receipt Date: 20130403
  Transmission Date: 20140414
  Serious: Yes (Hospitalization)
  Sender: FDA-Public Use
  Company Number: IT-IGSA-IG1271

PATIENT
  Age: 22 Month
  Sex: Male
  Weight: 13 kg

DRUGS (2)
  1. FLEBOGAMMA DIF [Suspect]
     Indication: IMMUNODEFICIENCY CONGENITAL
     Route: 042
     Dates: start: 20120925
  2. CHLORPHENAMINE MALEATE [Suspect]

REACTIONS (5)
  - Tremor [None]
  - Pallor [None]
  - Tachycardia [None]
  - Livedo reticularis [None]
  - Pyrexia [None]
